FAERS Safety Report 10688299 (Version 2)
Quarter: 2015Q1

REPORT INFORMATION
  Report Type: Spontaneous
  Country: US (occurrence: None)
  Receive Date: 20141231
  Receipt Date: 20150218
  Transmission Date: 20150720
  Serious: Yes (Other)
  Sender: FDA-Public Use
  Company Number: 2014VER00370

PATIENT
  Age: 45 Year
  Sex: Female

DRUGS (7)
  1. LISINOPRIL. [Concomitant]
     Active Substance: LISINOPRIL
  2. HCTZ [Concomitant]
     Active Substance: HYDROCHLOROTHIAZIDE
  3. MYORISAN [Suspect]
     Active Substance: ISOTRETINOIN
     Indication: ROSACEA
     Dates: start: 20141028, end: 20141216
  4. ASPIRIN. [Concomitant]
     Active Substance: ASPIRIN
  5. PRILOSEC [Concomitant]
     Active Substance: OMEPRAZOLE MAGNESIUM
  6. VITAMIN D [Concomitant]
     Active Substance: CHOLECALCIFEROL
  7. ALLEGRA [Concomitant]
     Active Substance: FEXOFENADINE HYDROCHLORIDE

REACTIONS (2)
  - Off label use [None]
  - Bladder operation [None]

NARRATIVE: CASE EVENT DATE: 20141028
